FAERS Safety Report 8281933-5 (Version None)
Quarter: 2012Q2

REPORT INFORMATION
  Report Type: 
  Country: None (occurrence: None)
  Receive Date: 20120413
  Receipt Date: 20120409
  Transmission Date: 20120825
  Serious: Yes (Hospitalization, Other)
  Sender: FDA-Public Use
  Company Number: US-PURDUE-USA-2012-0083670

PATIENT
  Sex: Female

DRUGS (2)
  1. OXYCONTIN [Suspect]
     Indication: PRODUCT USED FOR UNKNOWN INDICATION
     Dosage: 80 MG, Q8H
  2. OXYCONTIN [Suspect]
     Dosage: 40 MG, Q8H

REACTIONS (3)
  - MULTIPLE MYELOMA [None]
  - PNEUMONIA [None]
  - RIB FRACTURE [None]
